FAERS Safety Report 22373127 (Version 1)
Quarter: 2023Q2

REPORT INFORMATION
  Report Type: Spontaneous
  Country: CA (occurrence: CA)
  Receive Date: 20230526
  Receipt Date: 20230526
  Transmission Date: 20230721
  Serious: Yes (Death)
  Sender: FDA-Public Use
  Company Number: CA-BIOCRYST PHARMACEUTICALS, INC.-2023BCR00473

PATIENT

DRUGS (1)
  1. ORLADEYO [Suspect]
     Active Substance: BEROTRALSTAT HYDROCHLORIDE
     Indication: Angioedema
     Dosage: UNK

REACTIONS (2)
  - Upper respiratory tract infection [Fatal]
  - Off label use [Unknown]
